FAERS Safety Report 24425078 (Version 2)
Quarter: 2025Q1

REPORT INFORMATION
  Report Type: Spontaneous
  Country: US (occurrence: US)
  Receive Date: 20241010
  Receipt Date: 20250117
  Transmission Date: 20250408
  Serious: Yes (Other)
  Sender: RADIUS PHARM
  Company Number: US-RADIUS HEALTH INC.-2024US007980

PATIENT
  Age: 62 Year
  Sex: Female

DRUGS (4)
  1. TYMLOS [Suspect]
     Active Substance: ABALOPARATIDE
     Indication: Senile osteoporosis
     Route: 058
     Dates: start: 20230908
  2. CALCIUM\VITAMIN D [Concomitant]
     Active Substance: CALCIUM\VITAMIN D
     Indication: Supplementation therapy
  3. EXEMESTANE [Concomitant]
     Active Substance: EXEMESTANE
     Indication: Product used for unknown indication
  4. MESALAMINE [Concomitant]
     Active Substance: MESALAMINE
     Indication: Product used for unknown indication

REACTIONS (10)
  - Breast cancer [Unknown]
  - Loss of personal independence in daily activities [Not Recovered/Not Resolved]
  - Intentional dose omission [Unknown]
  - Nausea [Not Recovered/Not Resolved]
  - Headache [Not Recovered/Not Resolved]
  - Heart rate increased [Not Recovered/Not Resolved]
  - Malaise [Unknown]
  - Diarrhoea [Not Recovered/Not Resolved]
  - Dizziness [Not Recovered/Not Resolved]
  - Fatigue [Not Recovered/Not Resolved]

NARRATIVE: CASE EVENT DATE: 20240701
